FAERS Safety Report 24102144 (Version 5)
Quarter: 2025Q3

REPORT INFORMATION
  Report Type: Report from Study
  Country: US (occurrence: US)
  Receive Date: 20240717
  Receipt Date: 20250816
  Transmission Date: 20251021
  Serious: No
  Sender: ALEXION PHARMACEUTICALS
  Company Number: US-AstraZeneca-CH-00664417A

PATIENT
  Age: 29 Year
  Sex: Female
  Weight: 56.2 kg

DRUGS (8)
  1. STRENSIQ [Suspect]
     Active Substance: ASFOTASE ALFA
     Indication: Hypophosphatasia
     Dosage: UNK, TIW (2 INJECTIONS 0.8ML)
     Route: 065
     Dates: start: 20240622
  2. ESCITALOPRAM [Concomitant]
     Active Substance: ESCITALOPRAM OXALATE
     Route: 065
  3. TOPIRAMATE [Concomitant]
     Active Substance: TOPIRAMATE
     Route: 065
  4. MELOXICAM [Concomitant]
     Active Substance: MELOXICAM
     Route: 065
  5. BUPROPION [Concomitant]
     Active Substance: BUPROPION
     Route: 065
  6. PROPRANOLOL [Concomitant]
     Active Substance: PROPRANOLOL HYDROCHLORIDE
     Route: 065
  7. AMPHETAMINE [Concomitant]
     Active Substance: AMPHETAMINE
     Route: 065
  8. DEXTROAMPHETAMINE [Concomitant]
     Active Substance: DEXTROAMPHETAMINE
     Route: 065

REACTIONS (12)
  - Somnolence [Not Recovered/Not Resolved]
  - Injection site pain [Recovered/Resolved]
  - Injection site erythema [Recovered/Resolved]
  - Fatigue [Not Recovered/Not Resolved]
  - Fear of death [Unknown]
  - Feeling abnormal [Unknown]
  - Peripheral swelling [Unknown]
  - Weight decreased [Unknown]
  - Abdominal pain upper [Unknown]
  - Illness [Unknown]
  - Injection site mass [Recovered/Resolved]
  - Injection site reaction [Unknown]

NARRATIVE: CASE EVENT DATE: 20240623
